FAERS Safety Report 5584323-9 (Version None)
Quarter: 2008Q1

REPORT INFORMATION
  Report Type: 
  Country: None (occurrence: None)
  Receive Date: 20080108
  Receipt Date: 20071227
  Transmission Date: 20080703
  Serious: Yes (Other)
  Sender: FDA-Public Use
  Company Number: PL-ASTRAZENECA-2007SE06786

PATIENT
  Age: 92 Year
  Sex: Female
  Weight: 49 kg

DRUGS (1)
  1. ATACAND [Suspect]
     Indication: HYPERTENSION
     Route: 048
     Dates: start: 20070523, end: 20070613

REACTIONS (10)
  - BLOOD CREATININE INCREASED [None]
  - BLOOD UREA INCREASED [None]
  - CHILLS [None]
  - COUGH [None]
  - HYPERURICAEMIA [None]
  - HYPONATRAEMIA [None]
  - HYPOTENSION [None]
  - INSOMNIA [None]
  - MICTURITION URGENCY [None]
  - PRURITUS [None]
